FAERS Safety Report 11649164 (Version 1)
Quarter: 2015Q4

REPORT INFORMATION
  Report Type: Spontaneous
  Country: FR (occurrence: FR)
  Receive Date: 20151021
  Receipt Date: 20151021
  Transmission Date: 20160304
  Serious: Yes (Other)
  Sender: FDA-Public Use
  Company Number: FR-INDIVIOR-INDV-084348-2012

PATIENT
  Age: 41 Year
  Sex: Male

DRUGS (1)
  1. SUBUTEX [Suspect]
     Active Substance: BUPRENORPHINE HYDROCHLORIDE
     Indication: DRUG DEPENDENCE
     Dosage: UNK
     Route: 013
     Dates: end: 201207

REACTIONS (3)
  - Osteitis [Recovered/Resolved]
  - Sepsis [Recovered/Resolved]
  - Intentional product misuse [Recovered/Resolved]
